FAERS Safety Report 15479504 (Version 1)
Quarter: 2018Q4

REPORT INFORMATION
  Report Type: Spontaneous
  Country: ES (occurrence: ES)
  Receive Date: 20181009
  Receipt Date: 20181009
  Transmission Date: 20190205
  Serious: Yes (Other)
  Sender: FDA-Public Use
  Company Number: ES-MYLANLABS-2018M1073841

PATIENT
  Age: 31 Year
  Sex: Male

DRUGS (2)
  1. LEVOFLOXACIN. [Suspect]
     Active Substance: LEVOFLOXACIN
     Indication: BACTERIAL PROSTATITIS
     Dosage: UNK, 2-3 WEEKS
     Route: 065
  2. LEVOFLOXACIN. [Suspect]
     Active Substance: LEVOFLOXACIN
     Dosage: UNK
     Route: 065

REACTIONS (11)
  - Dermatitis [Unknown]
  - Inflammation [Unknown]
  - Anxiety [Recovered/Resolved]
  - Drug ineffective [Unknown]
  - Aggression [Recovered/Resolved]
  - Muscle rigidity [Unknown]
  - Suicidal ideation [Recovered/Resolved]
  - Anger [Recovered/Resolved]
  - Musculoskeletal stiffness [Not Recovered/Not Resolved]
  - Arthralgia [Unknown]
  - Myalgia [Not Recovered/Not Resolved]

NARRATIVE: CASE EVENT DATE: 201802
